FAERS Safety Report 14826200 (Version 2)
Quarter: 2018Q2

REPORT INFORMATION
  Report Type: Report from Study
  Country: US (occurrence: US)
  Receive Date: 20180430
  Receipt Date: 20180625
  Transmission Date: 20180711
  Serious: Yes (Life-Threatening)
  Sender: FDA-Public Use
  Company Number: PHEH2018US016601

PATIENT
  Age: 52 Year
  Sex: Male
  Weight: 175 kg

DRUGS (1)
  1. COSENTYX [Suspect]
     Active Substance: SECUKINUMAB
     Indication: PSORIATIC ARTHROPATHY
     Dosage: UNK UNK, QW
     Route: 058
     Dates: start: 201608, end: 201703

REACTIONS (6)
  - Rash generalised [Recovered/Resolved]
  - Swollen tongue [Unknown]
  - Skin reaction [Unknown]
  - Laryngeal discomfort [Unknown]
  - Blister [Not Recovered/Not Resolved]
  - Rash papular [Recovered/Resolved]

NARRATIVE: CASE EVENT DATE: 20170201
